FAERS Safety Report 11311398 (Version 1)
Quarter: 2015Q3

REPORT INFORMATION
  Report Type: Spontaneous
  Country: FR (occurrence: None)
  Receive Date: 20150723
  Receipt Date: 20150723
  Transmission Date: 20151125
  Serious: Yes (Other)
  Sender: FDA-Public Use
  Company Number: CO-PL-FR-2015-047

PATIENT
  Age: 70 Year
  Sex: Female

DRUGS (12)
  1. LEVOTHYROX (LEVOTHYROXINE SODIUM) [Concomitant]
     Active Substance: LEVOTHYROXINE SODIUM
  2. METHOTREXATE [Concomitant]
     Active Substance: METHOTREXATE
  3. ETODOLAC. [Concomitant]
     Active Substance: ETODOLAC
  4. LODINE (ETODOLAC) [Concomitant]
  5. SEROPLEX (ESITALOPRAM OXALATE) [Concomitant]
  6. DOLIPRANE (PRACETAMOL) [Concomitant]
  7. SERESTA (OXAZEPAM) [Concomitant]
     Active Substance: OXAZEPAM
  8. MORPHINE [Concomitant]
     Active Substance: MORPHINE
  9. RALOXIFENE. [Concomitant]
     Active Substance: RALOXIFENE
  10. CALCIUM [Concomitant]
     Active Substance: CALCIUM
  11. PLAQUENIL [Suspect]
     Active Substance: HYDROXYCHLOROQUINE SULFATE
     Indication: RHEUMATOID ARTHRITIS
     Dates: start: 19950410, end: 199510
  12. ZAMUDOL (TRAMADOL HYDROCHLORIDE) [Concomitant]

REACTIONS (8)
  - Cataract [None]
  - Visual field defect [None]
  - Maculopathy [None]
  - Osteopenia [None]
  - Back pain [None]
  - Osteoarthritis [None]
  - Prescribed overdose [None]
  - Neck pain [None]

NARRATIVE: CASE EVENT DATE: 200905
